FAERS Safety Report 17051958 (Version 1)
Quarter: 2019Q4

REPORT INFORMATION
  Report Type: Report from Study
  Country: US (occurrence: US)
  Receive Date: 20191120
  Receipt Date: 20191120
  Transmission Date: 20200122
  Serious: No
  Sender: FDA-Public Use
  Company Number: NVSC2019US041996

PATIENT
  Age: 58 Year
  Sex: Male

DRUGS (2)
  1. ENTRESTO [Suspect]
     Active Substance: SACUBITRIL\VALSARTAN
     Indication: CARDIAC DISORDER
     Dosage: 50 MG (24MG SACUBITRIL AND 26MG VALSARTAN), BID
     Route: 048
     Dates: start: 20191101
  2. ENTRESTO [Suspect]
     Active Substance: SACUBITRIL\VALSARTAN
     Indication: EJECTION FRACTION

REACTIONS (6)
  - Fatigue [Recovering/Resolving]
  - Flatulence [Recovering/Resolving]
  - Dizziness [Recovering/Resolving]
  - Blood pressure abnormal [Recovering/Resolving]
  - Product use in unapproved indication [Unknown]
  - Asthenia [Recovering/Resolving]

NARRATIVE: CASE EVENT DATE: 20191101
